FAERS Safety Report 12500116 (Version 1)
Quarter: 2016Q2

REPORT INFORMATION
  Report Type: Spontaneous
  Country: US (occurrence: None)
  Receive Date: 20160624
  Receipt Date: 20160624
  Transmission Date: 20160815
  Serious: No
  Sender: FDA-Public Use
  Company Number: None

PATIENT
  Age: 61 Year
  Sex: Female

DRUGS (13)
  1. TARCEVA [Suspect]
     Active Substance: ERLOTINIB HYDROCHLORIDE
     Indication: LUNG NEOPLASM MALIGNANT
     Route: 048
     Dates: start: 20160204
  2. ANORO ELIPT [Concomitant]
  3. CHROMIUM [Concomitant]
     Active Substance: CHROMIC CHLORIDE\CHROMIUM
  4. VESICARE [Concomitant]
     Active Substance: SOLIFENACIN SUCCINATE
  5. ENZYME [Concomitant]
  6. VITAMIN C [Concomitant]
     Active Substance: ASCORBIC ACID
  7. VITAMIN D3 [Concomitant]
     Active Substance: CHOLECALCIFEROL
  8. GLUCOSAMINE [Concomitant]
     Active Substance: GLUCOSAMINE
  9. LEXAPRO [Concomitant]
     Active Substance: ESCITALOPRAM OXALATE
  10. FENTANYL. [Concomitant]
     Active Substance: FENTANYL
  11. FAMOTIDINE. [Concomitant]
     Active Substance: FAMOTIDINE
  12. CLONIDINE. [Concomitant]
     Active Substance: CLONIDINE
  13. PAPAYA. [Concomitant]
     Active Substance: PAPAYA

REACTIONS (2)
  - Diarrhoea [None]
  - Rash [None]

NARRATIVE: CASE EVENT DATE: 201606
